FAERS Safety Report 6017115-7 (Version None)
Quarter: 2008Q4

REPORT INFORMATION
  Report Type: 
  Country: None (occurrence: None)
  Receive Date: 20081223
  Receipt Date: 20081212
  Transmission Date: 20090506
  Serious: Yes (Hospitalization)
  Sender: FDA-Public Use
  Company Number: US-JNJFOC-20081204557

PATIENT
  Sex: Female

DRUGS (3)
  1. NEUTRAPHOS [Suspect]
     Indication: MINERAL SUPPLEMENTATION
     Route: 048
  2. MOTILIUM [Concomitant]
     Indication: GASTROINTESTINAL MOTILITY DISORDER
     Route: 048
  3. NEXIUM [Concomitant]
     Indication: GASTROOESOPHAGEAL REFLUX DISEASE
     Route: 048

REACTIONS (1)
  - IMPAIRED GASTRIC EMPTYING [None]
